FAERS Safety Report 5179260-8 (Version None)
Quarter: 2006Q4

REPORT INFORMATION
  Report Type: 
  Country: None (occurrence: None)
  Receive Date: 20061211
  Receipt Date: 20061207
  Transmission Date: 20070319
  Serious: Yes (Death, Hospitalization, Other)
  Sender: FDA-Public Use
  Company Number: 144693USA

PATIENT
  Age: 56 Year
  Sex: Male
  Weight: 110.6777 kg

DRUGS (9)
  1. COPAXONE [Suspect]
     Indication: MULTIPLE SCLEROSIS
     Dosage: 20 MG, SUBCUTANEOUS
     Route: 058
     Dates: start: 20050115, end: 20060201
  2. MITOXANTRONE [Suspect]
     Indication: MULTIPLE SCLEROSIS
     Dosage: EACH CYCLE AT 12 MG/M2 FOR A TOTAL OF 4 CYCLE
     Dates: start: 20040501, end: 20050307
  3. CLADRIBINE [Suspect]
     Indication: MULTIPLE SCLEROSIS
     Dates: start: 19950101, end: 19960101
  4. ATORVASTATIN CALCIUM [Concomitant]
  5. LISINOPRIL [Concomitant]
  6. AMITRIPTYLINE HCL [Concomitant]
  7. METFORMIN HCL [Concomitant]
  8. ASPIRIN [Concomitant]
  9. ROSIGLITAZONE MALEATE [Concomitant]

REACTIONS (5)
  - HEPATIC MASS [None]
  - LIVER FUNCTION TEST ABNORMAL [None]
  - METASTASES TO BONE [None]
  - METASTASES TO LIVER [None]
  - OESOPHAGEAL CARCINOMA [None]
